FAERS Safety Report 25399314 (Version 1)
Quarter: 2025Q2

REPORT INFORMATION
  Report Type: Spontaneous
  Country: US (occurrence: US)
  Receive Date: 20250605
  Receipt Date: 20250605
  Transmission Date: 20250717
  Serious: Yes (Death)
  Sender: AMGEN
  Company Number: US-AMGEN-USASP2025105768

PATIENT

DRUGS (4)
  1. TRASTUZUMAB [Suspect]
     Active Substance: TRASTUZUMAB
     Indication: Breast cancer metastatic
     Route: 065
  2. CAPECITABINE [Concomitant]
     Active Substance: CAPECITABINE
  3. CARBOPLATIN [Concomitant]
     Active Substance: CARBOPLATIN
  4. ERIBULIN [Concomitant]
     Active Substance: ERIBULIN

REACTIONS (3)
  - Breast cancer [Fatal]
  - Death [Fatal]
  - Toxicity to various agents [Unknown]
